FAERS Safety Report 24167113 (Version 1)
Quarter: 2024Q3

REPORT INFORMATION
  Report Type: Spontaneous
  Country: US (occurrence: None)
  Receive Date: 20240801
  Receipt Date: 20240801
  Transmission Date: 20241017
  Serious: No
  Sender: Public
  Company Number: None

PATIENT
  Age: 33 Year
  Sex: Female
  Weight: 82.35 kg

DRUGS (9)
  1. MONTELUKAST [Suspect]
     Active Substance: MONTELUKAST SODIUM
     Indication: Asthma
     Dosage: OTHER QUANTITY : 1 TABLET(S);?FREQUENCY : DAILY;?
     Route: 048
     Dates: start: 20240724, end: 20240801
  2. AIRSUPRA [Concomitant]
     Active Substance: ALBUTEROL SULFATE\BUDESONIDE
  3. BUSPIRONE [Concomitant]
     Active Substance: BUSPIRONE HYDROCHLORIDE
  4. TYLENOL EXTRA STRENGTH [Concomitant]
     Active Substance: ACETAMINOPHEN
  5. FISH OIL [Concomitant]
     Active Substance: FISH OIL
  6. MAGNESIUM [Concomitant]
     Active Substance: MAGNESIUM
  7. VITAMINS [Concomitant]
     Active Substance: VITAMINS
  8. FOLIC ACID [Concomitant]
     Active Substance: FOLIC ACID
  9. VALERIAN [Concomitant]
     Active Substance: VALERIAN

REACTIONS (9)
  - Abnormal dreams [None]
  - Nightmare [None]
  - Somnambulism [None]
  - Memory impairment [None]
  - Agitation [None]
  - Soliloquy [None]
  - Feeling abnormal [None]
  - Hunger [None]
  - Constipation [None]
